FAERS Safety Report 17495174 (Version 1)
Quarter: 2020Q1

REPORT INFORMATION
  Report Type: Spontaneous
  Country: FR (occurrence: FR)
  Receive Date: 20200304
  Receipt Date: 20200304
  Transmission Date: 20200409
  Serious: Yes (Other)
  Sender: FDA-Public Use
  Company Number: NVSC2020FR054321

PATIENT
  Age: 6 Year
  Sex: Male
  Weight: 30 kg

DRUGS (3)
  1. RITALINE [Suspect]
     Active Substance: METHYLPHENIDATE HYDROCHLORIDE
     Indication: AUTISM SPECTRUM DISORDER
     Dosage: 20 MG, QD
     Route: 048
     Dates: start: 2018, end: 20191119
  2. RISPERDAL [Concomitant]
     Active Substance: RISPERIDONE
     Indication: AGGRESSION
     Dosage: 0.5 MG, QD
     Route: 048
  3. RISPERDAL [Concomitant]
     Active Substance: RISPERIDONE
     Dosage: 0.25 MG (TOTAL)
     Route: 048
     Dates: start: 20191119, end: 20191119

REACTIONS (3)
  - Altered state of consciousness [Recovered/Resolved]
  - Dyskinesia [Recovered/Resolved]
  - Drug interaction [Recovered/Resolved]

NARRATIVE: CASE EVENT DATE: 20191119
